FAERS Safety Report 5267742-X (Version None)
Quarter: 2007Q1

REPORT INFORMATION
  Report Type: 
  Country: None (occurrence: None)
  Receive Date: 20070316
  Receipt Date: 20070306
  Transmission Date: 20070707
  Serious: Yes (Hospitalization, Other)
  Sender: FDA-Public Use
  Company Number: GB-PFIZER INC-2007013533

PATIENT
  Age: 55 Year
  Sex: Female

DRUGS (6)
  1. GENOTROPIN [Suspect]
     Indication: GROWTH HORMONE DEFICIENCY
     Route: 058
     Dates: start: 20010119, end: 20040113
  2. GENOTROPIN [Suspect]
     Route: 058
     Dates: start: 20040114, end: 20050712
  3. GENOTROPIN [Suspect]
     Route: 058
     Dates: start: 20050713, end: 20060601
  4. CABERGOLINE [Concomitant]
     Route: 048
  5. LEVOTHYROXINE SODIUM [Concomitant]
     Dosage: DAILY DOSE:50MCG-FREQ:DAILY
     Route: 048
     Dates: start: 20060116
  6. SIMVASTATIN [Concomitant]
     Dosage: DAILY DOSE:40MG-FREQ:DAILY
     Route: 048
     Dates: start: 20030101

REACTIONS (1)
  - HEPATIC NEOPLASM MALIGNANT [None]
